FAERS Safety Report 24173223 (Version 1)
Quarter: 2024Q3

REPORT INFORMATION
  Report Type: Report from Study
  Country: CN (occurrence: CN)
  Receive Date: 20240805
  Receipt Date: 20240805
  Transmission Date: 20241017
  Serious: Yes (Other)
  Sender: TAKEDA
  Company Number: CN-HUTCHMED LIMITED-HMP2024CN01752

PATIENT
  Age: 66 Year
  Sex: Female

DRUGS (1)
  1. FRUQUINTINIB [Suspect]
     Active Substance: FRUQUINTINIB
     Indication: Gastric cancer
     Dosage: 4 MILLIGRAM, QD
     Route: 048
     Dates: start: 202403, end: 202406

REACTIONS (2)
  - Cervix haemorrhage uterine [Unknown]
  - Off label use [Unknown]

NARRATIVE: CASE EVENT DATE: 20240301
